FAERS Safety Report 5312390-6 (Version None)
Quarter: 2007Q2

REPORT INFORMATION
  Report Type: 
  Country: None (occurrence: None)
  Receive Date: 20070430
  Receipt Date: 20061204
  Transmission Date: 20071010
  Serious: No
  Sender: FDA-Public Use
  Company Number: 2006UW27028

PATIENT
  Age: 79 Year
  Sex: Female

DRUGS (6)
  1. NEXIUM [Suspect]
     Route: 048
  2. NEXIUM [Suspect]
     Route: 048
  3. LEVOXYL [Concomitant]
  4. BENICAR [Concomitant]
  5. NORVASC [Concomitant]
  6. MEDROL [Concomitant]

REACTIONS (4)
  - ABDOMINAL PAIN [None]
  - AMNESIA [None]
  - CONSTIPATION [None]
  - NEUROPATHY [None]
